FAERS Safety Report 12059553 (Version 1)
Quarter: 2016Q1

REPORT INFORMATION
  Report Type: Spontaneous
  Country: DE (occurrence: DE)
  Receive Date: 20160210
  Receipt Date: 20160210
  Transmission Date: 20160526
  Serious: Yes (Other)
  Sender: FDA-Public Use
  Company Number: DE-SUN PHARMACEUTICAL INDUSTRIES LTD-2016RR-110985

PATIENT

DRUGS (5)
  1. GAVISCON [Concomitant]
     Active Substance: ALUMINUM HYDROXIDE\MAGNESIUM CARBONATE
     Indication: GASTROOESOPHAGEAL REFLUX DISEASE
     Dosage: 1 TO 3 TIMES PER DAY IF REQUIRED, DURING GW 0-40.4
     Route: 064
     Dates: start: 20121212, end: 20130922
  2. ESOMEPRAZOLE [Suspect]
     Active Substance: ESOMEPRAZOLE
     Indication: GASTROOESOPHAGEAL REFLUX DISEASE
     Dosage: 80 MG/DAY UNTIL WEEK 6, AFTER WEEK 6: 40 MG/DAY
     Route: 064
     Dates: start: 20121212, end: 20130215
  3. FOLIO JODFREI [Concomitant]
     Indication: PROPHYLAXIS OF NEURAL TUBE DEFECT
     Dosage: 0.4 MG/DAY, DURING GW 0-12
     Route: 064
  4. ULCOGANT [Concomitant]
     Active Substance: SUCRALFATE
     Indication: GASTROOESOPHAGEAL REFLUX DISEASE
     Dosage: 1 G, TID, DURING GW 8.2-9
     Route: 064
     Dates: start: 20130208, end: 20130213
  5. PANTOPRAZOLE [Suspect]
     Active Substance: PANTOPRAZOLE SODIUM
     Indication: GASTROOESOPHAGEAL REFLUX DISEASE
     Dosage: FOR A FEW DAYS 60 MG/DAY THAN 40 MG/DAY, DURING GW 9.3 - 40.4
     Route: 064
     Dates: start: 20130216, end: 20130922

REACTIONS (2)
  - Vitiligo [Not Recovered/Not Resolved]
  - Foetal exposure during pregnancy [None]
